FAERS Safety Report 5980247-3 (Version None)
Quarter: 2008Q4

REPORT INFORMATION
  Report Type: 
  Country: None (occurrence: None)
  Receive Date: 20081205
  Receipt Date: 20081126
  Transmission Date: 20090506
  Serious: Yes (Other)
  Sender: FDA-Public Use
  Company Number: PHEH2008US09255

PATIENT
  Sex: Female

DRUGS (10)
  1. FORADIL [Suspect]
     Dosage: UNK
     Dates: start: 20080101
  2. AZMACORT [Concomitant]
  3. ALBUTEROL [Concomitant]
  4. SPIRIVA [Concomitant]
  5. SYSTANE (PROPYLENE GLYCOL/MACROGOL) [Concomitant]
  6. KLONOPIN [Concomitant]
  7. BACLOFEN [Concomitant]
  8. LASIX [Concomitant]
  9. PRAVACHOL [Concomitant]
  10. COMBIVENT                               /GFR/ [Concomitant]

REACTIONS (6)
  - DRY MOUTH [None]
  - DYSPNOEA [None]
  - LUNG INFILTRATION [None]
  - MYOCARDIAL INFARCTION [None]
  - PNEUMONIA [None]
  - TOOTH DISORDER [None]
